FAERS Safety Report 8282562-X (Version None)
Quarter: 2012Q2

REPORT INFORMATION
  Report Type: 
  Country: None (occurrence: None)
  Receive Date: 20120413
  Receipt Date: 20120410
  Transmission Date: 20120825
  Serious: Yes (Other)
  Sender: FDA-Public Use
  Company Number: FR-ROCHE-1053630

PATIENT

DRUGS (2)
  1. COPEGUS [Suspect]
     Indication: HEPATITIS C
     Dates: start: 20020101, end: 20020701
  2. PEGASYS [Suspect]
     Indication: HEPATITIS C
     Dates: start: 20020101, end: 20020701

REACTIONS (1)
  - TENDONITIS [None]
